FAERS Safety Report 19662010 (Version 3)
Quarter: 2021Q3

REPORT INFORMATION
  Report Type: Spontaneous
  Country: US (occurrence: US)
  Receive Date: 20210805
  Receipt Date: 20210928
  Transmission Date: 20211014
  Serious: Yes (Hospitalization, Other)
  Sender: FDA-Public Use
  Company Number: US-ABBVIE-21K-163-4013002-00

PATIENT
  Age: 42 Year
  Sex: Female
  Weight: 63.5 kg

DRUGS (11)
  1. XYREM [Suspect]
     Active Substance: SODIUM OXYBATE
     Indication: NARCOLEPSY
     Route: 065
     Dates: start: 2010
  2. NASOCORT [Concomitant]
     Active Substance: BUDESONIDE
     Indication: HYPERSENSITIVITY
     Dosage: 2 SPRAYS IN EACH NOSTRIL ONCE DAILY
     Dates: start: 202003
  3. CLARITIN [Concomitant]
     Active Substance: LORATADINE
     Indication: HYPERSENSITIVITY
  4. SYMBICORT [Concomitant]
     Active Substance: BUDESONIDE\FORMOTEROL FUMARATE DIHYDRATE
     Indication: PNEUMONIA
     Route: 065
  5. BREO ELLIPTA [Concomitant]
     Active Substance: FLUTICASONE FUROATE\VILANTEROL TRIFENATATE
     Indication: RESPIRATORY DISORDER
     Dosage: 200MCG/25MCG 1 PUFF DAILY
     Dates: start: 2021
  6. PFIZER?BIONTECH COVID?19 VACCINE [Suspect]
     Active Substance: TOZINAMERAN
     Indication: COVID-19 PROPHYLAXIS
     Route: 030
     Dates: start: 20210713, end: 20210713
  7. CLARITIN [Concomitant]
     Active Substance: LORATADINE
     Indication: DYSPNOEA
     Route: 048
     Dates: start: 202003
  8. FLONASE [Concomitant]
     Active Substance: FLUTICASONE PROPIONATE
     Indication: HYPERSENSITIVITY
     Dosage: 2 SPRAYS IN EACH NOSTRIL ONCE DAILY
     Dates: start: 202003
  9. LUPRON DEPOT [Suspect]
     Active Substance: LEUPROLIDE ACETATE
     Indication: ENDOMETRIOSIS
     Dosage: 8 MONTHS
     Route: 030
     Dates: start: 2015, end: 2016
  10. PFIZER?BIONTECH COVID?19 VACCINE [Suspect]
     Active Substance: TOZINAMERAN
     Indication: COVID-19 IMMUNISATION
     Route: 030
     Dates: start: 20210805, end: 20210805
  11. BREO ELLIPTA [Concomitant]
     Active Substance: FLUTICASONE FUROATE\VILANTEROL TRIFENATATE
     Indication: ASTHMA
     Dosage: 200MCG/25MCG

REACTIONS (45)
  - Hypoaesthesia [Unknown]
  - Ventricular tachycardia [Unknown]
  - Chest discomfort [Unknown]
  - COVID-19 [Unknown]
  - Chest pain [Recovering/Resolving]
  - Cough [Recovered/Resolved]
  - Oropharyngeal pain [Recovered/Resolved]
  - Injection site pain [Recovering/Resolving]
  - Menstrual disorder [Recovered/Resolved]
  - Hypertension [Not Recovered/Not Resolved]
  - Endometriosis [Unknown]
  - Heart rate increased [Recovering/Resolving]
  - Suspected COVID-19 [Unknown]
  - Oxygen saturation decreased [Unknown]
  - Headache [Recovered/Resolved]
  - Endometriosis [Unknown]
  - Abnormal uterine bleeding [Not Recovered/Not Resolved]
  - Arthralgia [Unknown]
  - Gluten sensitivity [Not Recovered/Not Resolved]
  - Rash [Unknown]
  - Abdominal pain [Not Recovered/Not Resolved]
  - Cough [Recovered/Resolved]
  - Tachycardia [Unknown]
  - Pain [Recovering/Resolving]
  - Endometriosis [Recovered/Resolved]
  - Salpingectomy [Unknown]
  - Pneumonia [Unknown]
  - Oropharyngeal pain [Recovered/Resolved]
  - Tachycardia [Recovered/Resolved]
  - Abdominal pain [Recovering/Resolving]
  - Oophorectomy [Unknown]
  - Ventricular tachycardia [Recovered/Resolved]
  - Dyspnoea [Recovering/Resolving]
  - Oxygen saturation decreased [Unknown]
  - Diarrhoea [Not Recovered/Not Resolved]
  - Dizziness [Unknown]
  - Anaemia [Unknown]
  - Myalgia [Unknown]
  - Palpitations [Recovered/Resolved]
  - Lymphadenopathy [Unknown]
  - Ovarian cyst [Unknown]
  - Oropharyngeal pain [Recovered/Resolved]
  - Dyspnoea [Recovering/Resolving]
  - Injection site pain [Unknown]
  - Dizziness [Recovered/Resolved]

NARRATIVE: CASE EVENT DATE: 2015
